FAERS Safety Report 7531144-3 (Version None)
Quarter: 2011Q2

REPORT INFORMATION
  Report Type: 
  Country: None (occurrence: None)
  Receive Date: 20110608
  Receipt Date: 20110525
  Transmission Date: 20111010
  Serious: Yes (Other)
  Sender: FDA-Public Use
  Company Number: US-JNJFOC-20110500897

PATIENT
  Sex: Female
  Weight: 86.18 kg

DRUGS (2)
  1. REMICADE [Suspect]
     Indication: PSORIATIC ARTHROPATHY
     Route: 042
     Dates: start: 20100101
  2. REMICADE [Suspect]
     Route: 042
     Dates: start: 20110426

REACTIONS (7)
  - LIP BLISTER [None]
  - NAUSEA [None]
  - PHOTOSENSITIVITY REACTION [None]
  - VOMITING [None]
  - HEADACHE [None]
  - HYPOAESTHESIA [None]
  - FATIGUE [None]
